FAERS Safety Report 5064678-4 (Version None)
Quarter: 2006Q3

REPORT INFORMATION
  Report Type: 
  Country: None (occurrence: None)
  Receive Date: 20060728
  Receipt Date: 20060721
  Transmission Date: 20061208
  Serious: Yes (Other)
  Sender: FDA-Public Use
  Company Number: US-GLAXOSMITHKLINE-A0613483A

PATIENT
  Sex: Male

DRUGS (1)
  1. AVANDIA [Suspect]
     Indication: DIABETES MELLITUS NON-INSULIN-DEPENDENT
     Dosage: 4MG UNKNOWN
     Route: 048

REACTIONS (4)
  - ARRHYTHMIA [None]
  - CARDIOMYOPATHY [None]
  - DYSPNOEA [None]
  - MITRAL VALVE PROLAPSE [None]
